FAERS Safety Report 4791555-6 (Version None)
Quarter: 2005Q4

REPORT INFORMATION
  Report Type: 
  Country: None (occurrence: None)
  Receive Date: 20051007
  Receipt Date: 20050302
  Transmission Date: 20060501
  Serious: No
  Sender: FDA-Public Use
  Company Number: US-BRISTOL-MYERS SQUIBB COMPANY-12882643

PATIENT
  Age: 72 Year
  Sex: Female
  Weight: 65 kg

DRUGS (3)
  1. AVAPRO [Suspect]
     Indication: HYPERTENSION
  2. CLONIDINE [Concomitant]
  3. VITAMINS [Concomitant]

REACTIONS (2)
  - ALOPECIA [None]
  - FATIGUE [None]
